FAERS Safety Report 25726974 (Version 1)
Quarter: 2025Q3

REPORT INFORMATION
  Report Type: Spontaneous
  Country: US (occurrence: None)
  Receive Date: 20250825
  Receipt Date: 20250825
  Transmission Date: 20251021
  Serious: Yes (Disabling)
  Sender: FDA-CTU
  Company Number: None

PATIENT
  Age: 26 Year
  Sex: Male

DRUGS (1)
  1. MOXIFLOXACIN [Suspect]
     Active Substance: MOXIFLOXACIN
     Indication: Mycoplasma genitalium infection
     Dosage: OTHER QUANTITY : 1 TABLET(S);?FREQUENCY : DAILY;?
     Route: 048
     Dates: start: 20250312, end: 20250319

REACTIONS (12)
  - Pelvic floor dysfunction [None]
  - Tendonitis [None]
  - Neuropathy peripheral [None]
  - Muscle spasms [None]
  - Anxiety [None]
  - Nonspecific reaction [None]
  - Dizziness [None]
  - Brain fog [None]
  - Gait disturbance [None]
  - Loss of personal independence in daily activities [None]
  - Asthenia [None]
  - Sexual dysfunction [None]

NARRATIVE: CASE EVENT DATE: 20250312
